FAERS Safety Report 7322468-3 (Version None)
Quarter: 2011Q1

REPORT INFORMATION
  Report Type: 
  Country: None (occurrence: None)
  Receive Date: 20110125
  Receipt Date: 20101005
  Transmission Date: 20110831
  Serious: No
  Sender: FDA-Public Use
  Company Number: US-003903

PATIENT
  Sex: Male
  Weight: 129.2752 kg

DRUGS (9)
  1. NITROFURANTOIN [Concomitant]
  2. DIGOXIN [Concomitant]
  3. BRADILAN [Concomitant]
  4. DIOVAN [Concomitant]
  5. FIRMAGON [Suspect]
     Indication: PROSTATE CANCER
     Dosage: (240 MG 1X SUBCUTANEOUS)
     Route: 058
     Dates: start: 20100927
  6. OMEPRAZOLE [Concomitant]
  7. RAPAFLO [Concomitant]
  8. WARFARIN SODIUM [Concomitant]
  9. LEVOTHYROXINE [Concomitant]

REACTIONS (6)
  - ASTHENIA [None]
  - ABASIA [None]
  - EATING DISORDER [None]
  - INJECTION SITE MASS [None]
  - NAUSEA [None]
  - HOT FLUSH [None]
